FAERS Safety Report 6013615-4 (Version None)
Quarter: 2008Q4

REPORT INFORMATION
  Report Type: 
  Country: None (occurrence: None)
  Receive Date: 20081219
  Receipt Date: 20081216
  Transmission Date: 20090506
  Serious: Yes (Other)
  Sender: FDA-Public Use
  Company Number: FR-BRISTOL-MYERS SQUIBB COMPANY-14447908

PATIENT
  Age: 60 Year
  Sex: Female

DRUGS (4)
  1. APROVEL FILM-COATED TABS 300 MG [Suspect]
  2. CRESTOR [Suspect]
  3. METFORMIN HCL [Suspect]
  4. JANUVIA [Suspect]

REACTIONS (1)
  - BLOOD CREATINE PHOSPHOKINASE INCREASED [None]
